FAERS Safety Report 13737420 (Version 1)
Quarter: 2017Q3

REPORT INFORMATION
  Report Type: Report from Study
  Country: CA (occurrence: CA)
  Receive Date: 20170710
  Receipt Date: 20170710
  Transmission Date: 20171127
  Serious: Yes (Hospitalization, Other)
  Sender: FDA-Public Use
  Company Number: CA-GILEAD-2017-0281231

PATIENT
  Age: 55 Year
  Sex: Male

DRUGS (3)
  1. IBAVYR [Suspect]
     Active Substance: RIBAVIRIN
     Indication: CHRONIC HEPATITIS C
     Dosage: 1200 MG, UNK
     Route: 048
     Dates: start: 20140526
  2. SOFOSBUVIR [Suspect]
     Active Substance: SOFOSBUVIR
     Indication: CHRONIC HEPATITIS C
     Dosage: UNK
     Route: 048
     Dates: start: 20140526
  3. RITUXIMAB. [Concomitant]
     Active Substance: RITUXIMAB

REACTIONS (5)
  - Hepatic failure [Unknown]
  - Drug ineffective [Unknown]
  - Hepatitis C [Unknown]
  - Renal failure [Unknown]
  - Treatment failure [Unknown]

NARRATIVE: CASE EVENT DATE: 201412
